FAERS Safety Report 5403232-9 (Version None)
Quarter: 2007Q3

REPORT INFORMATION
  Report Type: 
  Country: None (occurrence: None)
  Receive Date: 20070801
  Receipt Date: 20070720
  Transmission Date: 20080115
  Serious: Yes (Other)
  Sender: FDA-Public Use
  Company Number: LT-PFIZER INC-2007048724

PATIENT
  Age: 70 Year
  Sex: Female

DRUGS (3)
  1. XALATAN [Suspect]
     Indication: GLAUCOMA
     Dates: start: 20070523, end: 20070530
  2. XALACOM [Suspect]
     Indication: GLAUCOMA
     Dosage: DAILY DOSE:1DROP
     Route: 047
     Dates: start: 20070530, end: 20070623
  3. BETOPTIC [Suspect]
     Indication: GLAUCOMA
     Dosage: DAILY DOSE:2DROP
     Dates: start: 20070523, end: 20070530

REACTIONS (3)
  - EYE IRRITATION [None]
  - EYE PRURITUS [None]
  - INTRAOCULAR PRESSURE INCREASED [None]
